FAERS Safety Report 24791913 (Version 2)
Quarter: 2025Q2

REPORT INFORMATION
  Report Type: Spontaneous
  Country: SA (occurrence: SA)
  Receive Date: 20241231
  Receipt Date: 20250609
  Transmission Date: 20250717
  Serious: Yes (Hospitalization)
  Sender: CHIESI
  Company Number: SA-CHIESI-2024CHF08395

PATIENT
  Age: 3 Year
  Sex: Female

DRUGS (2)
  1. METRELEPTIN [Suspect]
     Active Substance: METRELEPTIN
     Indication: Congenital generalised lipodystrophy
     Dosage: 1.8 MILLIGRAM, QD
     Route: 058
     Dates: start: 202402, end: 20241201
  2. METRELEPTIN [Suspect]
     Active Substance: METRELEPTIN
     Dosage: 0.8 MILLIGRAM, QD
     Route: 058

REACTIONS (3)
  - Hyperglycaemia [Recovered/Resolved]
  - Product availability issue [Not Recovered/Not Resolved]
  - Product dose omission issue [Not Recovered/Not Resolved]
